FAERS Safety Report 5070592-0 (Version None)
Quarter: 2006Q3

REPORT INFORMATION
  Report Type: 
  Country: None (occurrence: None)
  Receive Date: 20060804
  Receipt Date: 20050706
  Transmission Date: 20061208
  Serious: No
  Sender: FDA-Public Use
  Company Number: US-GLAXOSMITHKLINE-A0565141A

PATIENT
  Age: 43 Year
  Sex: Female

DRUGS (5)
  1. NICORETTE (MINT) [Suspect]
  2. KLONOPIN [Concomitant]
  3. METHADONE HCL [Concomitant]
  4. BLOOD PRESSURE MEDICATION [Concomitant]
  5. ACYCLOVIR [Concomitant]

REACTIONS (2)
  - DEPRESSION [None]
  - HEART RATE INCREASED [None]
